FAERS Safety Report 15656476 (Version 1)
Quarter: 2018Q4

REPORT INFORMATION
  Report Type: Spontaneous
  Country: None (occurrence: US)
  Receive Date: 20181126
  Receipt Date: 20181126
  Transmission Date: 20190205
  Serious: No
  Sender: FDA-Public Use
  Company Number: US-MEDAC PHARMA, INC.-2059261

PATIENT
  Sex: Female

DRUGS (2)
  1. SULFASALAZINE. [Concomitant]
     Active Substance: SULFASALAZINE
     Dates: start: 201707
  2. RASUVO [Suspect]
     Active Substance: METHOTREXATE SODIUM
     Route: 051
     Dates: start: 201710, end: 201808

REACTIONS (7)
  - Alopecia [Unknown]
  - Pain in extremity [Unknown]
  - Arthralgia [Unknown]
  - Fatigue [Unknown]
  - Joint swelling [Unknown]
  - Joint stiffness [Unknown]
  - Drug intolerance [Unknown]
